FAERS Safety Report 9660995 (Version 1)
Quarter: 2013Q4

REPORT INFORMATION
  Report Type: Spontaneous
  Country: US (occurrence: US)
  Receive Date: 20131031
  Receipt Date: 20131031
  Transmission Date: 20140711
  Serious: Yes (Hospitalization)
  Sender: FDA-Public Use
  Company Number: US-ACTAVISPR-2013-19157

PATIENT
  Age: 70 Year
  Sex: Female
  Weight: 54 kg

DRUGS (3)
  1. POTASSIUM CHLORIDE EXTENDED-RELEASE (WATSON LABORATORIES) [Suspect]
     Indication: ELECTROLYTE IMBALANCE
     Dosage: 20 MEQ, BID
     Route: 048
     Dates: start: 2008
  2. MAGNESIUM [Concomitant]
     Indication: ELECTROLYTE IMBALANCE
     Dosage: DAILY
     Route: 048
  3. NEURONTIN [Concomitant]
     Indication: NEUROPATHY PERIPHERAL
     Dosage: DAILY
     Route: 048

REACTIONS (1)
  - Renal failure [Recovered/Resolved]
